FAERS Safety Report 9257106 (Version 3)
Quarter: 2013Q4

REPORT INFORMATION
  Report Type: Spontaneous
  Country: US (occurrence: US)
  Receive Date: 20130426
  Receipt Date: 20131122
  Transmission Date: 20140711
  Serious: Yes (Hospitalization)
  Sender: FDA-Public Use
  Company Number: US-ASTRAZENECA-2013SE27680

PATIENT
  Age: 34 Year
  Sex: Female

DRUGS (18)
  1. NEXIUM [Suspect]
     Indication: GASTROOESOPHAGEAL REFLUX DISEASE
     Route: 048
     Dates: start: 1997, end: 2007
  2. NEXIUM [Suspect]
     Indication: DYSPEPSIA
     Route: 048
     Dates: start: 1997, end: 2007
  3. NEXIUM [Suspect]
     Indication: DYSPEPSIA
     Route: 048
     Dates: start: 1997, end: 2007
  4. PRILOSEC [Suspect]
     Indication: GASTROOESOPHAGEAL REFLUX DISEASE
     Route: 048
  5. PRILOSEC [Suspect]
     Indication: DYSPEPSIA
     Route: 048
  6. PRILOSEC [Suspect]
     Indication: GASTROOESOPHAGEAL REFLUX DISEASE
     Route: 048
     Dates: start: 2006
  7. PRILOSEC [Suspect]
     Indication: DYSPEPSIA
     Route: 048
     Dates: start: 2006
  8. PRILOSEC [Suspect]
     Indication: GASTROOESOPHAGEAL REFLUX DISEASE
     Route: 048
     Dates: start: 20090721
  9. PRILOSEC [Suspect]
     Indication: DYSPEPSIA
     Route: 048
     Dates: start: 20090721
  10. PREVACID [Suspect]
     Indication: DYSPEPSIA
     Route: 065
  11. TUMS [Concomitant]
  12. ALKA SELTZER [Concomitant]
     Dosage: RANDOMLY
  13. PEPTO BISMOL [Concomitant]
  14. ROLAIDS [Concomitant]
  15. MYLANTA [Concomitant]
  16. WELLBUTRIN [Concomitant]
  17. CENTRUM [Concomitant]
  18. IBUPROFEN [Concomitant]

REACTIONS (20)
  - Osteoporosis [Unknown]
  - Ankle fracture [Unknown]
  - Ovarian cyst [Unknown]
  - Gallbladder disorder [Unknown]
  - Haemorrhoids [Unknown]
  - Lower limb fracture [Unknown]
  - Carpal tunnel syndrome [Unknown]
  - Hand fracture [Unknown]
  - Wrist fracture [Unknown]
  - Bone density decreased [Unknown]
  - Bone disorder [Unknown]
  - Calcium deficiency [Unknown]
  - Arthritis [Unknown]
  - Vitamin D deficiency [Unknown]
  - Osteoarthritis [Unknown]
  - Foot fracture [Unknown]
  - Intervertebral disc degeneration [Unknown]
  - Tibia fracture [Unknown]
  - Depression [Unknown]
  - Osteopenia [Unknown]
